APPROVED DRUG PRODUCT: AZACITIDINE
Active Ingredient: AZACITIDINE
Strength: 100MG/VIAL
Dosage Form/Route: POWDER;INTRAVENOUS, SUBCUTANEOUS
Application: A210748 | Product #001
Applicant: LUPIN LTD
Approved: Feb 27, 2019 | RLD: No | RS: No | Type: DISCN